FAERS Safety Report 19406171 (Version 1)
Quarter: 2021Q2

REPORT INFORMATION
  Report Type: Spontaneous
  Country: IN (occurrence: IN)
  Receive Date: 20210611
  Receipt Date: 20210611
  Transmission Date: 20210717
  Serious: Yes (Other)
  Sender: FDA-Public Use
  Company Number: IN-PFIZER INC-2018508446

PATIENT
  Age: 53 Year
  Sex: Female

DRUGS (3)
  1. PALBACE [Suspect]
     Active Substance: PALBOCICLIB
     Indication: BREAST CANCER METASTATIC
     Dosage: 125 MG, CYCLIC (ONCE DAILY 21 DAYS IN A MONTH)
     Route: 048
     Dates: start: 20181024
  2. LETROZOLE. [Concomitant]
     Active Substance: LETROZOLE
     Dosage: UNK
     Dates: start: 201810
  3. ZOLADEX [Suspect]
     Active Substance: GOSERELIN ACETATE
     Dosage: 4 MG
     Route: 042

REACTIONS (19)
  - Lip swelling [Unknown]
  - Pruritus [Unknown]
  - Cough [Unknown]
  - Faeces discoloured [Unknown]
  - Vitamin D decreased [Not Recovered/Not Resolved]
  - Pharyngeal swelling [Unknown]
  - Alopecia [Not Recovered/Not Resolved]
  - Seizure [Unknown]
  - Swollen tongue [Unknown]
  - White blood cell count decreased [Unknown]
  - Pyrexia [Unknown]
  - Haemorrhage [Unknown]
  - Wheezing [Unknown]
  - Vomiting [Unknown]
  - Flatulence [Not Recovered/Not Resolved]
  - Arthralgia [Unknown]
  - Chest discomfort [Unknown]
  - Swelling face [Unknown]
  - Haemoglobin decreased [Unknown]

NARRATIVE: CASE EVENT DATE: 20201012
